FAERS Safety Report 4588042-7 (Version None)
Quarter: 2005Q1

REPORT INFORMATION
  Report Type: 
  Country: None (occurrence: None)
  Receive Date: 20050216
  Receipt Date: 20050128
  Transmission Date: 20050727
  Serious: Yes (Other)
  Sender: FDA-Public Use
  Company Number: FR_050105725

PATIENT
  Age: 78 Year
  Sex: Female

DRUGS (3)
  1. PERGOLIDE MESYLATE [Suspect]
     Indication: PARKINSON'S DISEASE
     Dosage: 1 MG DAY
     Dates: start: 20010101
  2. MODOPAR [Concomitant]
  3. ATHYMIL (MIANSERIN HYDROCHLORIDE) [Concomitant]

REACTIONS (4)
  - AORTIC VALVE CALCIFICATION [None]
  - MITRAL VALVE CALCIFICATION [None]
  - MITRAL VALVE DISEASE [None]
  - SUPRAVENTRICULAR EXTRASYSTOLES [None]
